FAERS Safety Report 18611432 (Version 2)
Quarter: 2020Q4

REPORT INFORMATION
  Report Type: Spontaneous
  Country: US (occurrence: US)
  Receive Date: 20201214
  Receipt Date: 20201230
  Transmission Date: 20210114
  Serious: Yes (Hospitalization, Other)
  Sender: FDA-Public Use
  Company Number: US-B.I. PHARMACEUTICALS,INC./RIDGEFIELD-2020-BI-067664

PATIENT
  Age: 79 Year
  Sex: Male

DRUGS (3)
  1. SPIRIVA [Suspect]
     Active Substance: TIOTROPIUM BROMIDE MONOHYDRATE
     Indication: CHRONIC OBSTRUCTIVE PULMONARY DISEASE
     Dosage: TWO INHALATIONS, 1 CAPSULE DAILY
     Route: 055
     Dates: end: 20200916
  2. ADVAIR HFA [Concomitant]
     Active Substance: FLUTICASONE PROPIONATE\SALMETEROL XINAFOATE
     Indication: CHRONIC OBSTRUCTIVE PULMONARY DISEASE
     Dosage: UNKNOWN DOSE, TWICE DAILY
  3. SPIRIVA [Suspect]
     Active Substance: TIOTROPIUM BROMIDE MONOHYDRATE
     Dosage: TWO INHALATIONS, 1 CAPSULE DAILY
     Route: 055
     Dates: start: 20201014

REACTIONS (7)
  - Intestinal perforation [Recovered/Resolved]
  - Skin ulcer [Recovered/Resolved]
  - Gait disturbance [Unknown]
  - Coagulopathy [Recovered/Resolved]
  - Road traffic accident [Recovered/Resolved]
  - Thrombosis [Unknown]
  - Femoral artery aneurysm [Recovered/Resolved]

NARRATIVE: CASE EVENT DATE: 2013
